FAERS Safety Report 5843320-6 (Version None)
Quarter: 2008Q3

REPORT INFORMATION
  Report Type: 
  Country: None (occurrence: None)
  Receive Date: 20080812
  Receipt Date: 20080812
  Transmission Date: 20090109
  Serious: No
  Sender: FDA-Public Use
  Company Number: None

PATIENT
  Age: 44 Year
  Sex: Female
  Weight: 90.7194 kg

DRUGS (2)
  1. CYMBALTA [Suspect]
     Indication: DEPRESSION
     Dosage: 40 MG DAILY PO
     Route: 048
     Dates: start: 20080501, end: 20080722
  2. CYMBALTA [Suspect]
     Indication: DIABETIC NEUROPATHY
     Dosage: 40 MG DAILY PO
     Route: 048
     Dates: start: 20080501, end: 20080722

REACTIONS (18)
  - ANGER [None]
  - ARTHRALGIA [None]
  - CHILLS [None]
  - CONDITION AGGRAVATED [None]
  - DEPRESSION [None]
  - EMOTIONAL DISORDER [None]
  - HEADACHE [None]
  - HOT FLUSH [None]
  - INFLUENZA LIKE ILLNESS [None]
  - MENTAL DISORDER [None]
  - NERVOUS SYSTEM DISORDER [None]
  - NEURALGIA [None]
  - PAIN [None]
  - PARAESTHESIA [None]
  - SUICIDAL IDEATION [None]
  - VISION BLURRED [None]
  - VISUAL IMPAIRMENT [None]
  - WITHDRAWAL SYNDROME [None]
